FAERS Safety Report 5566270-1 (Version None)
Quarter: 2007Q4

REPORT INFORMATION
  Report Type: 
  Country: None (occurrence: None)
  Receive Date: 20071213
  Receipt Date: 20071213
  Transmission Date: 20080405
  Serious: Yes (Hospitalization)
  Sender: FDA-Public Use
  Company Number: None

PATIENT
  Age: 74 Year
  Sex: Male

DRUGS (1)
  1. AMITRIPTLINE HCL [Suspect]
     Indication: DEPRESSION
     Dosage: 25MG HS PO
     Route: 048
     Dates: start: 20070424, end: 20071029

REACTIONS (2)
  - DIZZINESS [None]
  - HYPOTENSION [None]
